FAERS Safety Report 9352902 (Version 2)
Quarter: 2013Q3

REPORT INFORMATION
  Report Type: Spontaneous
  Country: US (occurrence: US)
  Receive Date: 20130618
  Receipt Date: 20130806
  Transmission Date: 20140515
  Serious: Yes (Death)
  Sender: FDA-Public Use
  Company Number: US-JNJFOC-20130603446

PATIENT
  Sex: 0

DRUGS (1)
  1. FENTANYL TRANSDERMA L SYSTEM [Suspect]
     Indication: PAIN
     Route: 062

REACTIONS (2)
  - Death [Fatal]
  - Product quality issue [Unknown]
